FAERS Safety Report 5763276-4 (Version None)
Quarter: 2008Q2

REPORT INFORMATION
  Report Type: 
  Country: None (occurrence: None)
  Receive Date: 20080604
  Receipt Date: 20080604
  Transmission Date: 20081010
  Serious: Yes (Other)
  Sender: FDA-Public Use
  Company Number: None

PATIENT
  Age: 31 Year
  Sex: Female
  Weight: 70.3075 kg

DRUGS (1)
  1. SINGULAIR [Suspect]
     Indication: ASTHMA
     Dosage: 1 PILL ONCE DAILY PO
     Route: 048
     Dates: start: 20070416, end: 20070530

REACTIONS (6)
  - ANXIETY [None]
  - MORBID THOUGHTS [None]
  - PANIC REACTION [None]
  - THINKING ABNORMAL [None]
  - TREMOR [None]
  - VOMITING [None]
